FAERS Safety Report 14407828 (Version 2)
Quarter: 2018Q2

REPORT INFORMATION
  Report Type: Spontaneous
  Country: US (occurrence: US)
  Receive Date: 20180118
  Receipt Date: 20180501
  Transmission Date: 20180711
  Serious: Yes (Other)
  Sender: FDA-Public Use
  Company Number: US-SAOL THERAPEUTICS-2017SAO03527

PATIENT
  Age: 7 Year
  Sex: Male

DRUGS (1)
  1. LIORESAL [Suspect]
     Active Substance: BACLOFEN
     Dosage: 90.04 ?G, \DAY
     Route: 037

REACTIONS (6)
  - Decreased appetite [Unknown]
  - Malaise [Unknown]
  - Complication associated with device [Unknown]
  - Weight decreased [Unknown]
  - CSF pressure decreased [Unknown]
  - Implant site ulcer [Unknown]

NARRATIVE: CASE EVENT DATE: 20180105
